FAERS Safety Report 11846389 (Version 1)
Quarter: 2015Q4

REPORT INFORMATION
  Report Type: Report from Study
  Country: BE (occurrence: BE)
  Receive Date: 20151217
  Receipt Date: 20151217
  Transmission Date: 20160305
  Serious: Yes (Other)
  Sender: FDA-Public Use
  Company Number: PHHY2015BE160515

PATIENT

DRUGS (6)
  1. MEDROL [Concomitant]
     Active Substance: METHYLPREDNISOLONE
     Dosage: 8 MG, UNK
     Route: 065
     Dates: start: 2015, end: 20150924
  2. MEDROL [Concomitant]
     Active Substance: METHYLPREDNISOLONE
     Dosage: 8 MG/4 MG, EVERY OTHER DAY
     Dates: start: 20150925
  3. MEDROL [Concomitant]
     Active Substance: METHYLPREDNISOLONE
     Dosage: 32 MG, UNK
     Route: 065
     Dates: start: 20150712, end: 2015
  4. MEDROL [Concomitant]
     Active Substance: METHYLPREDNISOLONE
     Indication: GRAFT VERSUS HOST DISEASE IN LUNG
     Dosage: 64 MG, UNK
     Route: 065
     Dates: start: 2015, end: 20150705
  5. CGP 57148B [Suspect]
     Active Substance: IMATINIB MESYLATE
     Indication: GRAFT VERSUS HOST DISEASE IN LUNG
     Dosage: UNK
     Route: 065
     Dates: start: 201504, end: 20150518
  6. MEDROL [Concomitant]
     Active Substance: METHYLPREDNISOLONE
     Dosage: 48 MG, UNK
     Route: 065
     Dates: start: 20150706, end: 20150712

REACTIONS (6)
  - Pleural effusion [Recovering/Resolving]
  - Obstructive airways disorder [Recovered/Resolved]
  - Dyspnoea [Recovered/Resolved]
  - C-reactive protein increased [Unknown]
  - Obliterative bronchiolitis [Unknown]
  - Leukocytosis [Unknown]

NARRATIVE: CASE EVENT DATE: 2015
